FAERS Safety Report 6715943-3 (Version None)
Quarter: 2010Q2

REPORT INFORMATION
  Report Type: 
  Country: None (occurrence: None)
  Receive Date: 20100506
  Receipt Date: 20100506
  Transmission Date: 20101027
  Serious: No
  Sender: FDA-Public Use
  Company Number: None

PATIENT
  Age: 71 Year
  Sex: Male
  Weight: 63.5036 kg

DRUGS (1)
  1. EFFIENT [Suspect]
     Indication: STENT PLACEMENT
     Dosage: 1 TBLT 1 X A DAY ORAL
     Route: 048
     Dates: start: 20100324, end: 20100420

REACTIONS (2)
  - PRURITUS [None]
  - URTICARIA [None]
